FAERS Safety Report 19251430 (Version 2)
Quarter: 2021Q2

REPORT INFORMATION
  Report Type: Spontaneous
  Country: US (occurrence: US)
  Receive Date: 20210513
  Receipt Date: 20210513
  Transmission Date: 20210717
  Serious: Yes (Hospitalization)
  Sender: FDA-Public Use
  Company Number: US-JNJFOC-20210510504

PATIENT
  Age: 71 Year
  Sex: Female

DRUGS (2)
  1. TETRABENAZINE. [Interacting]
     Active Substance: TETRABENAZINE
     Indication: TARDIVE DYSKINESIA
     Route: 065
  2. ULTRAM [Suspect]
     Active Substance: TRAMADOL HYDROCHLORIDE
     Indication: PROCEDURAL PAIN
     Route: 065

REACTIONS (2)
  - Drug interaction [Unknown]
  - Tardive dyskinesia [Recovering/Resolving]
